FAERS Safety Report 9964743 (Version 1)
Quarter: 2014Q1

REPORT INFORMATION
  Report Type: Spontaneous
  Country: US (occurrence: US)
  Receive Date: 20140305
  Receipt Date: 20140305
  Transmission Date: 20141002
  Serious: No
  Sender: FDA-Public Use
  Company Number: US-AMGEN-USASP2014000555

PATIENT
  Age: 43 Year
  Sex: Female
  Weight: 52.61 kg

DRUGS (7)
  1. ENBREL [Suspect]
     Indication: PRODUCT USED FOR UNKNOWN INDICATION
     Dosage: 50 MG, QWK
     Route: 058
  2. MELOXICAM [Concomitant]
     Dosage: 7.5 MG, UNK
     Route: 048
  3. TRAMADOL HCL [Concomitant]
     Dosage: 50 MG, UNK
     Route: 048
  4. SUMATRIPTAN [Concomitant]
     Dosage: 25 MG, UNK
     Route: 048
  5. OMEPRAZOLE [Concomitant]
     Dosage: 40 MG, UNK
     Route: 048
  6. FOLIC ACID [Concomitant]
     Dosage: UNK
     Route: 048
  7. METHOTREXATE [Concomitant]
     Dosage: 25 MG/ML, UNK
     Route: 058

REACTIONS (2)
  - Injection site pain [Unknown]
  - Injection site reaction [Unknown]
